FAERS Safety Report 18918243 (Version 2)
Quarter: 2022Q1

REPORT INFORMATION
  Report Type: Spontaneous
  Country: US (occurrence: US)
  Receive Date: 20210220
  Receipt Date: 20220120
  Transmission Date: 20220423
  Serious: No
  Sender: FDA-Public Use
  Company Number: US-BRISTOL-MYERS SQUIBB COMPANY-BMS-2021-017347

PATIENT
  Age: 46 Year
  Sex: Female

DRUGS (10)
  1. ORENCIA [Suspect]
     Active Substance: ABATACEPT
     Indication: Rheumatoid arthritis
     Dosage: 125 MILLIGRAM, QWK
     Route: 058
     Dates: start: 20160628
  2. ORENCIA [Suspect]
     Active Substance: ABATACEPT
     Indication: Rheumatoid arthritis
     Dosage: 125 MILLIGRAM, QWK
     Route: 058
     Dates: start: 20160628
  3. ORENCIA [Suspect]
     Active Substance: ABATACEPT
     Indication: Asthma
     Dosage: 125 MILLIGRAM, QWK
     Route: 058
     Dates: start: 202108
  4. ORENCIA [Suspect]
     Active Substance: ABATACEPT
     Indication: Asthma
     Dosage: 125 MILLIGRAM, QWK
     Route: 058
     Dates: start: 202108
  5. ORENCIA [Suspect]
     Active Substance: ABATACEPT
     Indication: Rhinitis allergic
  6. ORENCIA [Suspect]
     Active Substance: ABATACEPT
     Indication: Rhinitis allergic
  7. ORENCIA [Suspect]
     Active Substance: ABATACEPT
     Indication: Hypersensitivity
  8. ORENCIA [Suspect]
     Active Substance: ABATACEPT
     Indication: Hypersensitivity
  9. ORENCIA [Suspect]
     Active Substance: ABATACEPT
     Indication: Autoimmune thyroiditis
  10. ORENCIA [Suspect]
     Active Substance: ABATACEPT
     Indication: Autoimmune thyroiditis

REACTIONS (4)
  - Rheumatoid arthritis [Unknown]
  - Pain [Unknown]
  - Joint swelling [Unknown]
  - Arthralgia [Unknown]
